FAERS Safety Report 9115089 (Version 1)
Quarter: 2013Q1

REPORT INFORMATION
  Report Type: Spontaneous
  Country: US (occurrence: US)
  Receive Date: 20130225
  Receipt Date: 20130225
  Transmission Date: 20140127
  Serious: Yes (Hospitalization)
  Sender: FDA-Public Use
  Company Number: US-MYLANLABS-2013S1003345

PATIENT
  Sex: Female

DRUGS (2)
  1. WARFARIN [Suspect]
     Indication: PULMONARY EMBOLISM
     Route: 065
  2. WARFARIN [Suspect]
     Indication: PULMONARY EMBOLISM
     Dosage: 5MG TAKEN AS DIRECTED; CONSUMED 5/DAY
     Route: 065

REACTIONS (2)
  - Spinal epidural haematoma [Unknown]
  - Incorrect dose administered [Unknown]
